FAERS Safety Report 8928991 (Version 2)
Quarter: 2013Q4

REPORT INFORMATION
  Report Type: Spontaneous
  Country: US (occurrence: US)
  Receive Date: 20121128
  Receipt Date: 20131022
  Transmission Date: 20140711
  Serious: Yes (Other)
  Sender: FDA-Public Use
  Company Number: PHEH2012US023311

PATIENT
  Sex: Female
  Weight: 67.13 kg

DRUGS (4)
  1. RECLAST [Suspect]
     Dates: start: 20111118
  2. ATENOLOL [Concomitant]
     Dosage: 50 MG, QD
     Route: 048
  3. FUROSEMIDE [Concomitant]
     Dosage: 40 MG, QD
     Route: 048
  4. PROPRANOLOL [Concomitant]
     Dosage: 60 MG, TID

REACTIONS (27)
  - Injury [Unknown]
  - Myocardial infarction [Unknown]
  - Convulsion [Unknown]
  - Pericarditis [Unknown]
  - Rib fracture [Unknown]
  - Angina pectoris [Unknown]
  - Osteomalacia [Unknown]
  - Irritable bowel syndrome [Unknown]
  - Skin lesion [Unknown]
  - Gastrooesophageal reflux disease [Unknown]
  - Anxiety [Unknown]
  - Anaemia [Unknown]
  - Pericardial effusion [Unknown]
  - Epistaxis [Unknown]
  - Osteoporosis [Unknown]
  - Scoliosis [Unknown]
  - Osteoarthritis [Unknown]
  - Endometriosis [Unknown]
  - Nephrolithiasis [Unknown]
  - Urinary tract infection [Unknown]
  - Arthralgia [Unknown]
  - Palpitations [Unknown]
  - Migraine [Unknown]
  - Tricuspid valve incompetence [Unknown]
  - Tachycardia [Unknown]
  - Dyspnoea [Unknown]
  - Fibromyalgia [Unknown]
